FAERS Safety Report 13632562 (Version 1)
Quarter: 2017Q2

REPORT INFORMATION
  Report Type: Spontaneous
  Country: CH (occurrence: CH)
  Receive Date: 20170608
  Receipt Date: 20170608
  Transmission Date: 20170830
  Serious: Yes (Hospitalization, Other)
  Sender: FDA-Public Use
  Company Number: CH-MYLANLABS-2017M1033275

PATIENT

DRUGS (8)
  1. BRUFEN 400 MG TABLET [Suspect]
     Active Substance: IBUPROFEN
     Route: 048
  2. ELTROXIN LF [Concomitant]
     Route: 048
  3. LYRICA [Concomitant]
     Active Substance: PREGABALIN
     Route: 048
  4. CIPROFLOXACIN SPIRIG HC [Suspect]
     Active Substance: CIPROFLOXACIN HYDROCHLORIDE
     Route: 048
     Dates: start: 20170418, end: 20170518
  5. DAFALGAN [Interacting]
     Active Substance: ACETAMINOPHEN
     Route: 048
  6. ACIDUM FOLICUM STREULI [Concomitant]
     Active Substance: FOLIC ACID
     Route: 048
  7. CLEXANE [Concomitant]
     Active Substance: ENOXAPARIN SODIUM
     Route: 058
  8. FLUCONAZOL ECO [Interacting]
     Active Substance: FLUCONAZOLE
     Route: 048
     Dates: start: 20170418, end: 20170518

REACTIONS (2)
  - Leukopenia [Recovering/Resolving]
  - Drug interaction [Recovered/Resolved]

NARRATIVE: CASE EVENT DATE: 20170418
